FAERS Safety Report 22362544 (Version 1)
Quarter: 2023Q2

REPORT INFORMATION
  Report Type: Spontaneous
  Country: SI (occurrence: SI)
  Receive Date: 20230524
  Receipt Date: 20230524
  Transmission Date: 20230721
  Serious: Yes (Other)
  Sender: FDA-Public Use
  Company Number: SI-SAMSUNG BIOEPIS-SB-2023-06183

PATIENT
  Sex: Female

DRUGS (2)
  1. MESALAMINE [Suspect]
     Active Substance: MESALAMINE
     Indication: Product used for unknown indication
     Dosage: 3 MG, QD
  2. MESALAMINE [Suspect]
     Active Substance: MESALAMINE
     Dosage: 4 MG, QD

REACTIONS (4)
  - Interstitial lung disease [Unknown]
  - Pulmonary toxicity [Unknown]
  - Kidney fibrosis [Unknown]
  - Tubulointerstitial nephritis [Unknown]
